FAERS Safety Report 5102971-7 (Version None)
Quarter: 2006Q3

REPORT INFORMATION
  Report Type: 
  Country: None (occurrence: None)
  Receive Date: 20060908
  Receipt Date: 20060824
  Transmission Date: 20061208
  Serious: Yes (Hospitalization)
  Sender: FDA-Public Use
  Company Number: 228856

PATIENT
  Age: 56 Year
  Sex: Female
  Weight: 57 kg

DRUGS (5)
  1. AVASTIN [Suspect]
     Indication: COLON CANCER
     Dosage: 430 MG, Q2W, INTRAVENOUS
     Route: 042
     Dates: start: 20051129, end: 20060721
  2. OXALIPLATIN [Suspect]
     Indication: COLON CANCER
     Dosage: 135 MG, Q2W, INTRAVENOUS
     Route: 042
     Dates: start: 20051129
  3. LEUCOVORIN(LEUCOVORIN CALCIUM) [Suspect]
     Indication: COLON CANCER
     Dosage: 160 MG, INTRAVENOUS
     Route: 042
     Dates: start: 20051129
  4. FLUOROURACIL [Suspect]
     Indication: COLON CANCER
     Dosage: SEE IMAGE
     Route: 042
     Dates: start: 20051129
  5. FLUOROURACIL [Suspect]
     Indication: COLON CANCER
     Dosage: SEE IMAGE
     Route: 042
     Dates: start: 20051129

REACTIONS (5)
  - ABDOMINAL PAIN [None]
  - BLOOD ALKALINE PHOSPHATASE INCREASED [None]
  - DUODENITIS [None]
  - GAMMA-GLUTAMYLTRANSFERASE INCREASED [None]
  - PLATELET COUNT DECREASED [None]
